FAERS Safety Report 10954893 (Version 2)
Quarter: 2015Q2

REPORT INFORMATION
  Report Type: Report from Study
  Country: BR (occurrence: BR)
  Receive Date: 20150325
  Receipt Date: 20150625
  Transmission Date: 20150821
  Serious: Yes (Hospitalization, Other)
  Sender: FDA-Public Use
  Company Number: PHHY2015BR034164

PATIENT
  Age: 89 Year
  Sex: Male
  Weight: 55 kg

DRUGS (9)
  1. EXELON PATCH [Suspect]
     Active Substance: RIVASTIGMINE
     Dosage: 13.3 MG (PATCH 15CM2), UNK
     Route: 062
  2. LEPONEX [Concomitant]
     Active Substance: CLOZAPINE
     Indication: HALLUCINATION
     Dosage: 0.5 DF, QD
     Route: 048
  3. CIPROFLOXACIN. [Concomitant]
     Active Substance: CIPROFLOXACIN
     Indication: PARKINSON^S DISEASE
     Dosage: 1.5 DF, QD
     Route: 048
  4. CARBIDOPA/LEVODOPA [Concomitant]
     Active Substance: CARBIDOPA\LEVODOPA
     Indication: PARKINSON^S DISEASE
     Dosage: 3 DF, QD
     Route: 048
  5. EXELON PATCH [Suspect]
     Active Substance: RIVASTIGMINE
     Indication: PRODUCT USED FOR UNKNOWN INDICATION
     Dosage: 4.6 MG, (PATCH 5CM2),
     Dates: start: 201309
  6. EXELON PATCH [Suspect]
     Active Substance: RIVASTIGMINE
     Dosage: 9.5 MG (PATCH 10CM2), UNK
     Route: 062
  7. CITALOPRAM [Concomitant]
     Active Substance: CITALOPRAM HYDROBROMIDE
     Indication: DEPRESSION
     Dosage: 1 DF, QD
     Route: 048
  8. EBIX [Concomitant]
     Active Substance: MEMANTINE HYDROCHLORIDE
     Indication: DEMENTIA ALZHEIMER^S TYPE
     Dosage: 2 DF, QD
     Route: 048
  9. EXELON PATCH [Suspect]
     Active Substance: RIVASTIGMINE
     Dosage: 4.6 MG (PATCH 5CM2), UNK
     Route: 062
     Dates: end: 2014

REACTIONS (10)
  - Decubitus ulcer [Unknown]
  - Anxiety [Unknown]
  - Catatonia [Unknown]
  - Dysstasia [Unknown]
  - Emotional distress [Unknown]
  - Sluggishness [Unknown]
  - Feeling abnormal [Unknown]
  - Agitation [Unknown]
  - Pneumonia aspiration [Unknown]
  - Memory impairment [Unknown]

NARRATIVE: CASE EVENT DATE: 201408
